FAERS Safety Report 17142993 (Version 1)
Quarter: 2019Q4

REPORT INFORMATION
  Report Type: Spontaneous
  Country: US (occurrence: US)
  Receive Date: 20191211
  Receipt Date: 20191211
  Transmission Date: 20200122
  Serious: No
  Sender: FDA-Public Use
  Company Number: US-PURDUE-USA-2019-0148252

PATIENT
  Sex: Female

DRUGS (2)
  1. DILAUDID [Suspect]
     Active Substance: HYDROMORPHONE HYDROCHLORIDE
     Indication: PAIN
     Dosage: UNK
     Route: 048
     Dates: start: 201908
  2. SYNTHROID [Suspect]
     Active Substance: LEVOTHYROXINE SODIUM
     Indication: HYPOTHYROIDISM
     Dosage: 112 MCG, UNK
     Route: 048
     Dates: start: 201908

REACTIONS (8)
  - Headache [Unknown]
  - Hypothyroidism [Not Recovered/Not Resolved]
  - Pruritus [Unknown]
  - Feeling cold [Recovered/Resolved]
  - Feeling hot [Recovered/Resolved]
  - Thoracic cavity drainage [Unknown]
  - Fatigue [Unknown]
  - Skin discolouration [Unknown]

NARRATIVE: CASE EVENT DATE: 201908
